FAERS Safety Report 20189520 (Version 1)
Quarter: 2021Q4

REPORT INFORMATION
  Report Type: Spontaneous
  Country: US (occurrence: None)
  Receive Date: 20211215
  Receipt Date: 20211215
  Transmission Date: 20220303
  Serious: No
  Sender: FDA-Public Use
  Company Number: None

PATIENT
  Age: 64 Year
  Sex: Female
  Weight: 59.4 kg

DRUGS (10)
  1. EXEMESTANE [Suspect]
     Active Substance: EXEMESTANE
     Indication: Breast cancer
     Dosage: FREQUENCY : DAILY;?
     Route: 048
     Dates: start: 20210423
  2. BUPROPION [Concomitant]
     Active Substance: BUPROPION
  3. PAROXETINE [Concomitant]
     Active Substance: PAROXETINE
  4. LORAZEPAM [Concomitant]
     Active Substance: LORAZEPAM
  5. TOPIRAMATE [Concomitant]
     Active Substance: TOPIRAMATE
  6. ZOLPIDEM TARTRATE [Concomitant]
     Active Substance: ZOLPIDEM TARTRATE
  7. LOSARTAN [Concomitant]
     Active Substance: LOSARTAN
  8. ATORVASTATIN [Concomitant]
     Active Substance: ATORVASTATIN
  9. Vitamin D3 25mcg [Concomitant]
  10. ALBUTEROL SULFATE [Concomitant]
     Active Substance: ALBUTEROL SULFATE

REACTIONS (2)
  - Hot flush [None]
  - Alopecia [None]

NARRATIVE: CASE EVENT DATE: 20211215
